FAERS Safety Report 5785509-0 (Version None)
Quarter: 2008Q2

REPORT INFORMATION
  Report Type: 
  Country: None (occurrence: None)
  Receive Date: 20080620
  Receipt Date: 20080620
  Transmission Date: 20081010
  Serious: Yes (Hospitalization)
  Sender: FDA-Public Use
  Company Number: None

PATIENT
  Age: 62 Year
  Sex: Female
  Weight: 89.3586 kg

DRUGS (4)
  1. BENICAR HCT [Suspect]
     Indication: HYPERTENSION
     Dosage: 1 DAILY PO
     Route: 048
     Dates: start: 20080529, end: 20080611
  2. PRILOSEC [Concomitant]
  3. OS-CAL+D [Concomitant]
  4. FEXOFENADINE [Concomitant]

REACTIONS (4)
  - DEAFNESS UNILATERAL [None]
  - EAR PAIN [None]
  - POLYCHONDRITIS [None]
  - RHINALGIA [None]
